FAERS Safety Report 14732929 (Version 3)
Quarter: 2018Q2

REPORT INFORMATION
  Report Type: Spontaneous
  Country: JP (occurrence: JP)
  Receive Date: 20180409
  Receipt Date: 20180618
  Transmission Date: 20180711
  Serious: Yes (Life-Threatening, Hospitalization, Disabling, Other)
  Sender: FDA-Public Use
  Company Number: JP-CONCORDIA PHARMACEUTICALS INC.-GSH201804-001180

PATIENT
  Age: 58 Year
  Sex: Male
  Weight: 57 kg

DRUGS (5)
  1. KAYEXALATE [Suspect]
     Active Substance: SODIUM POLYSTYRENE SULFONATE
     Indication: HYPERKALAEMIA
     Route: 048
     Dates: start: 20180228, end: 20180320
  2. KAYEXALATE [Suspect]
     Active Substance: SODIUM POLYSTYRENE SULFONATE
     Indication: VASCULITIS
  3. BANAN [Concomitant]
     Active Substance: CEFPODOXIME PROXETIL
  4. LAXOBERON [Concomitant]
     Active Substance: SODIUM PICOSULFATE
     Indication: CONSTIPATION
     Dates: start: 20180312, end: 20180320
  5. PURSENNID [Concomitant]
     Active Substance: SENNOSIDES A AND B
     Indication: CONSTIPATION
     Dates: start: 20180314, end: 20180320

REACTIONS (2)
  - Large intestine perforation [Recovered/Resolved with Sequelae]
  - Peritonitis [Recovered/Resolved]

NARRATIVE: CASE EVENT DATE: 20180320
